FAERS Safety Report 4454700-8 (Version None)
Quarter: 2004Q3

REPORT INFORMATION
  Report Type: 
  Country: None (occurrence: None)
  Receive Date: 20040920
  Receipt Date: 20040920
  Transmission Date: 20050211
  Serious: Yes (Other)
  Sender: FDA-Public Use
  Company Number: None

PATIENT
  Age: 83 Year
  Sex: Male
  Weight: 71.6683 kg

DRUGS (3)
  1. DOXAZOSIN    8MG    APOTEX [Suspect]
     Dosage: 8 MG 1X DAILY ORAL
     Route: 048
  2. PROSCAR [Concomitant]
  3. CARDURA [Concomitant]

REACTIONS (4)
  - INSOMNIA [None]
  - OLIGURIA [None]
  - PHARMACEUTICAL PRODUCT COMPLAINT [None]
  - POLLAKIURIA [None]
